FAERS Safety Report 15557598 (Version 1)
Quarter: 2018Q4

REPORT INFORMATION
  Report Type: Report from Study
  Country: DE (occurrence: DE)
  Receive Date: 20181027
  Receipt Date: 20181027
  Transmission Date: 20190205
  Serious: Yes (Hospitalization)
  Sender: FDA-Public Use
  Company Number: DE-AXELLIA-001985

PATIENT
  Age: 60 Year
  Sex: Male

DRUGS (6)
  1. COTRIM FORTE [Concomitant]
     Active Substance: SULFAMETHOXAZOLE\TRIMETHOPRIM
     Indication: INFECTION PROPHYLAXIS
     Dosage: DAILY DOSE: 1920 MG MILLIGRAM(S) EVERY DAY, UNIT DOSE: 960 MG
     Route: 065
  2. VORICONAZOLE. [Suspect]
     Active Substance: VORICONAZOLE
     Indication: BRONCHOPULMONARY ASPERGILLOSIS
     Dosage: DAILY DOSE: 200 MG MILLIGRAM(S) EVERY DAY, UNIT DOSE: 50 MG
     Route: 065
     Dates: start: 20161013, end: 20161025
  3. MIDOSTAURIN [Suspect]
     Active Substance: MIDOSTAURIN
     Indication: ACUTE MYELOID LEUKAEMIA
     Route: 048
     Dates: start: 20160520
  4. CYTARABINE. [Concomitant]
     Active Substance: CYTARABINE
     Indication: ACUTE MYELOID LEUKAEMIA
     Dosage: 200 MG
     Route: 048
     Dates: start: 20160914
  5. VFEND [Concomitant]
     Active Substance: VORICONAZOLE
     Indication: PRODUCT USED FOR UNKNOWN INDICATION
     Dosage: DAILY DOSE: 400 MG MILLIGRAM(S) EVERY DAY, UNIT DOSE: 200 MG
     Route: 065
  6. ACICLOVIR [Concomitant]
     Active Substance: ACYCLOVIR
     Indication: INFECTION PROPHYLAXIS
     Dosage: DAILY DOSE: 1600 MG MILLIGRAM(S) EVERY DAY
     Route: 065

REACTIONS (1)
  - General physical health deterioration [Recovered/Resolved]

NARRATIVE: CASE EVENT DATE: 20161019
